FAERS Safety Report 9292478 (Version 4)
Quarter: 2013Q4

REPORT INFORMATION
  Report Type: Spontaneous
  Country: US (occurrence: US)
  Receive Date: 20130516
  Receipt Date: 20131017
  Transmission Date: 20140711
  Serious: Yes (Hospitalization, Other)
  Sender: FDA-Public Use
  Company Number: US-PFIZER INC-2013146491

PATIENT
  Age: 88 Year
  Sex: Female
  Weight: 55.78 kg

DRUGS (5)
  1. XALATAN [Suspect]
     Indication: GLAUCOMA
     Dosage: 1 DROP IN BOTH EYES DAILY IN EVENING
     Route: 047
     Dates: start: 2008
  2. DILANTIN [Suspect]
     Indication: CONVULSION
     Dosage: 100 MG, 2X/DAY
     Dates: start: 1993
  3. DILANTIN [Suspect]
     Dosage: UNK
  4. LOVASTATIN [Suspect]
     Indication: BLOOD CHOLESTEROL INCREASED
     Dosage: 20 MG, DAILY AT NIGHT
  5. AZOPT [Suspect]
     Indication: GLAUCOMA
     Dosage: UNK, 2X/DAY IN BOTH EYES
     Route: 047

REACTIONS (5)
  - Cardiac disorder [Unknown]
  - Cardiac disorder [Unknown]
  - Angle closure glaucoma [Unknown]
  - Blindness unilateral [Unknown]
  - Visual acuity reduced [Unknown]
